FAERS Safety Report 5387036-1 (Version None)
Quarter: 2007Q3

REPORT INFORMATION
  Report Type: 
  Country: None (occurrence: None)
  Receive Date: 20070713
  Receipt Date: 20070709
  Transmission Date: 20080115
  Serious: Yes (Hospitalization)
  Sender: FDA-Public Use
  Company Number: TW-ABBOTT-07P-153-0374145-00

PATIENT
  Sex: Male

DRUGS (7)
  1. KALETRA [Suspect]
     Indication: HIV INFECTION
     Route: 048
     Dates: start: 19941217
  2. KALETRA [Suspect]
     Route: 048
     Dates: start: 20070201
  3. NORVIR [Suspect]
     Indication: HIV INFECTION
     Dates: start: 19941104, end: 19941217
  4. LAMIVUDINE + ZIDOVUDINE [Suspect]
     Indication: HIV INFECTION
     Route: 048
     Dates: start: 19941217, end: 20070101
  5. LAMIVUDINE + ZIDOVUDINE [Suspect]
     Route: 048
     Dates: start: 20070201
  6. INDINAVIR [Concomitant]
     Indication: DRUG USE FOR UNKNOWN INDICATION
     Dates: start: 19941104, end: 19941217
  7. STOCRIT [Concomitant]
     Indication: DRUG USE FOR UNKNOWN INDICATION
     Dates: start: 19941104, end: 19941217

REACTIONS (3)
  - CHILLS [None]
  - PERIANAL ABSCESS [None]
  - PYREXIA [None]
